FAERS Safety Report 7402233-9 (Version None)
Quarter: 2011Q2

REPORT INFORMATION
  Report Type: 
  Country: None (occurrence: None)
  Receive Date: 20110408
  Receipt Date: 20110314
  Transmission Date: 20111010
  Serious: Yes (Disabling)
  Sender: FDA-Public Use
  Company Number: US-ENDO PHARMACEUTICALS INC.-METO20110328

PATIENT
  Sex: Female

DRUGS (1)
  1. METOCLOPRAMIDE HYDROCHLORIDE [Suspect]
     Dosage: UNK
     Route: 048
     Dates: start: 20030101, end: 20060101

REACTIONS (5)
  - EXTRAPYRAMIDAL DISORDER [None]
  - TREMOR [None]
  - ASTHENIA [None]
  - MOVEMENT DISORDER [None]
  - INCORRECT DRUG ADMINISTRATION DURATION [None]
